FAERS Safety Report 5602931-3 (Version None)
Quarter: 2008Q1

REPORT INFORMATION
  Report Type: 
  Country: None (occurrence: None)
  Receive Date: 20080125
  Receipt Date: 20080118
  Transmission Date: 20080703
  Serious: Yes (Other)
  Sender: FDA-Public Use
  Company Number: US-GILEAD-2008-0015025

PATIENT
  Sex: Female
  Weight: 68.1 kg

DRUGS (10)
  1. LETAIRIS [Suspect]
     Indication: PULMONARY HYPERTENSION
     Route: 048
     Dates: start: 20071218
  2. REVATIO [Concomitant]
     Indication: PULMONARY HYPERTENSION
     Route: 048
  3. NORVASC [Concomitant]
     Indication: ESSENTIAL HYPERTENSION
     Route: 048
  4. LASIX [Concomitant]
     Indication: PULMONARY HYPERTENSION
     Route: 048
  5. POTASSIUM CHLORIDE [Concomitant]
     Indication: MINERAL SUPPLEMENTATION
     Route: 048
  6. PROVENTIL [Concomitant]
     Indication: ASTHMA
  7. SINGULAIR [Concomitant]
     Indication: ASTHMA
     Route: 048
  8. NEXIUM [Concomitant]
     Indication: GASTROOESOPHAGEAL REFLUX DISEASE
     Route: 048
  9. NASONEX [Concomitant]
     Indication: RHINITIS ALLERGIC
     Route: 055
  10. OSCAL D [Concomitant]
     Indication: MINERAL SUPPLEMENTATION
     Route: 048

REACTIONS (6)
  - EYE OEDEMA [None]
  - FACE OEDEMA [None]
  - HEADACHE [None]
  - HOT FLUSH [None]
  - NASAL CONGESTION [None]
  - OEDEMA PERIPHERAL [None]
